FAERS Safety Report 6321270-9 (Version None)
Quarter: 2009Q3

REPORT INFORMATION
  Report Type: 
  Country: None (occurrence: None)
  Receive Date: 20090822
  Receipt Date: 20090108
  Transmission Date: 20100115
  Serious: No
  Sender: FDA-Public Use
  Company Number: US-ABBOTT-09P-163-0496547-00

PATIENT
  Sex: Female
  Weight: 58.112 kg

DRUGS (3)
  1. NIASPAN [Suspect]
     Indication: HIGH DENSITY LIPOPROTEIN DECREASED
     Dates: start: 20081215
  2. NORVASC [Concomitant]
     Indication: HYPERTENSION
  3. SPIRONOLACTONE [Concomitant]
     Indication: HYPERTENSION

REACTIONS (5)
  - DYSGEUSIA [None]
  - FATIGUE [None]
  - FLUSHING [None]
  - RASH [None]
  - THIRST [None]
